FAERS Safety Report 8822786 (Version 1)
Quarter: 2012Q4

REPORT INFORMATION
  Report Type: 
  Country: US (occurrence: US)
  Receive Date: 20121003
  Receipt Date: 20121003
  Transmission Date: 20130627
  Serious: Yes (Hospitalization)
  Sender: FDA-Public Use
  Company Number: US-B.I. PHARMACEUTICALS,INC./RIDGEFIELD-2012-BP-23518BP

PATIENT
  Age: 66 Year
  Sex: Female
  Weight: 61 kg

DRUGS (5)
  1. PRADAXA [Suspect]
     Indication: CEREBROVASCULAR ACCIDENT PROPHYLAXIS
     Dosage: 300 mg
     Route: 048
     Dates: start: 201107
  2. PRADAXA [Suspect]
     Indication: ATRIAL FIBRILLATION
  3. TIKOSYN [Concomitant]
     Indication: ARRHYTHMIA
     Dosage: 500 mcg
     Route: 048
     Dates: start: 201107
  4. POTASSIUM [Concomitant]
     Indication: ATRIAL FIBRILLATION
     Dosage: 10 mEq
     Route: 048
     Dates: start: 201107
  5. BISOPROLOL FUMARATE [Concomitant]
     Indication: ARRHYTHMIA
     Dosage: 2.5 mg
     Route: 048
     Dates: start: 201107

REACTIONS (1)
  - Rectal haemorrhage [Not Recovered/Not Resolved]
